FAERS Safety Report 25674685 (Version 1)
Quarter: 2025Q3

REPORT INFORMATION
  Report Type: Spontaneous
  Country: JP (occurrence: JP)
  Receive Date: 20250813
  Receipt Date: 20250813
  Transmission Date: 20251021
  Serious: Yes (Other)
  Sender: RANBAXY
  Company Number: JP-SUN PHARMACEUTICAL INDUSTRIES LTD-2025RR-522158

PATIENT
  Age: 72 Year
  Sex: Male

DRUGS (3)
  1. AFATINIB [Suspect]
     Active Substance: AFATINIB
     Indication: Lung adenocarcinoma stage IV
     Route: 065
  2. ERLOTINIB [Suspect]
     Active Substance: ERLOTINIB
     Indication: Disease progression
     Dosage: 150 MILLIGRAM, DAILY
     Route: 065
  3. RAMUCIRUMAB [Suspect]
     Active Substance: RAMUCIRUMAB
     Indication: Disease progression
     Dosage: 10 MILLIGRAM/KILOGRAM, FORTNIGHT
     Route: 065

REACTIONS (2)
  - Disease progression [Recovering/Resolving]
  - Ascites [Recovered/Resolved]
